FAERS Safety Report 9970089 (Version 1)
Quarter: 2014Q1

REPORT INFORMATION
  Report Type: Spontaneous
  Country: US (occurrence: None)
  Receive Date: 20140127
  Receipt Date: 20140127
  Transmission Date: 20141002
  Serious: Yes (Other)
  Sender: FDA-Public Use
  Company Number: 1178546

PATIENT
  Sex: Male

DRUGS (1)
  1. RITUXAN [Suspect]
     Indication: CHRONIC LYMPHOCYTIC LEUKAEMIA
     Dosage: (50 MG, 1 IN 1 HR), UNKNOWN

REACTIONS (2)
  - Anaphylactic reaction [None]
  - Product quality issue [None]
